FAERS Safety Report 5601676-3 (Version None)
Quarter: 2008Q1

REPORT INFORMATION
  Report Type: 
  Country: None (occurrence: None)
  Receive Date: 20080124
  Receipt Date: 20080122
  Transmission Date: 20080703
  Serious: Yes (Hospitalization)
  Sender: FDA-Public Use
  Company Number: US-GILEAD-2007-0013478

PATIENT
  Sex: Female

DRUGS (11)
  1. TENOFOVIR DISOPROXIL FUMARATE [Suspect]
     Indication: HIV INFECTION
  2. REYATAZ [Concomitant]
     Indication: HIV INFECTION
  3. NORVIR [Concomitant]
     Indication: HIV INFECTION
  4. VIDEX EC [Concomitant]
     Indication: HIV INFECTION
  5. CLARITIN [Concomitant]
     Indication: ASTHMA
  6. SINGULAIR [Concomitant]
     Indication: ASTHMA
  7. AMBIEN [Concomitant]
     Indication: INSOMNIA
  8. PEPCID AC [Concomitant]
     Indication: GASTROOESOPHAGEAL REFLUX DISEASE
  9. HYDROCHLOROTHIAZIDE [Concomitant]
     Indication: HYPERTENSION
  10. COZAAR [Concomitant]
     Indication: HYPERTENSION
  11. LABETALOL HCL [Concomitant]
     Indication: HYPERTENSION

REACTIONS (2)
  - NEPHROLITHIASIS [None]
  - PYELONEPHRITIS [None]
